FAERS Safety Report 7638108-X (Version None)
Quarter: 2011Q3

REPORT INFORMATION
  Report Type: 
  Country: None (occurrence: None)
  Receive Date: 20110720
  Receipt Date: 20110707
  Transmission Date: 20111222
  Serious: Yes (Other)
  Sender: FDA-Public Use
  Company Number: 894679

PATIENT
  Age: 72 Year
  Sex: Female
  Weight: 78.64 kg

DRUGS (1)
  1. HEPARIN SODIUM INJECTION [Suspect]
     Indication: ANTICOAGULANT THERAPY
     Dosage: 5,000 UNITS, PRN, INTRAVENOUS (NOT OTHERWISE SPECIFIED)
     Route: 042
     Dates: start: 20110420, end: 20110420

REACTIONS (9)
  - LARYNGEAL OEDEMA [None]
  - VOMITING [None]
  - DYSPNOEA [None]
  - NAUSEA [None]
  - THROMBOSIS [None]
  - OXYGEN SATURATION DECREASED [None]
  - THROMBOSIS IN DEVICE [None]
  - INCORRECT DOSE ADMINISTERED [None]
  - DRUG INEFFECTIVE [None]
